FAERS Safety Report 4535911-X (Version None)
Quarter: 2004Q4

REPORT INFORMATION
  Report Type: 
  Country: None (occurrence: None)
  Receive Date: 20041223
  Receipt Date: 20041213
  Transmission Date: 20050328
  Serious: Yes (Disabling, Other)
  Sender: FDA-Public Use
  Company Number: US-JNJFOC-20040400709

PATIENT
  Sex: Male
  Weight: 121.11 kg

DRUGS (1)
  1. REMICADE [Suspect]
     Indication: DRUG USE FOR UNKNOWN INDICATION
     Route: 042

REACTIONS (3)
  - HERPES ZOSTER [None]
  - OPTIC ISCHAEMIC NEUROPATHY [None]
  - SPINAL OPERATION [None]
